FAERS Safety Report 6690253-1 (Version None)
Quarter: 2010Q2

REPORT INFORMATION
  Report Type: 
  Country: None (occurrence: None)
  Receive Date: 20100421
  Receipt Date: 20100420
  Transmission Date: 20101027
  Serious: Yes (Disabling)
  Sender: FDA-Public Use
  Company Number: BE-ROCHE-695838

PATIENT
  Sex: Female
  Weight: 70 kg

DRUGS (3)
  1. CAPECITABINE [Suspect]
     Indication: RECTAL CANCER
     Route: 048
  2. OXALIPLATIN [Suspect]
     Indication: RECTAL CANCER
     Route: 042
  3. MORPHINE [Suspect]
     Dosage: DRUG: MORPHINE + MCV. DOSE: 2 X 10 MG.
     Route: 048
     Dates: start: 20100329, end: 20100331

REACTIONS (1)
  - DRUG INTOLERANCE [None]
